FAERS Safety Report 6796363-2 (Version None)
Quarter: 2010Q2

REPORT INFORMATION
  Report Type: 
  Country: None (occurrence: None)
  Receive Date: 20100622
  Receipt Date: 20100607
  Transmission Date: 20101027
  Serious: Yes (Other)
  Sender: FDA-Public Use
  Company Number: 013729

PATIENT
  Sex: 0

DRUGS (1)
  1. VIMPAT [Suspect]
     Indication: EPILEPSY
     Dosage: 100 MG BID ORAL, 150 MG BID, (DOSE DOWNTITRATED TO UNKNOWN DOSE), (150 MG BID, DOSE INCREASED SLOWLY
     Route: 048

REACTIONS (1)
  - FLANK PAIN [None]
